FAERS Safety Report 4873101-1 (Version None)
Quarter: 2006Q1

REPORT INFORMATION
  Report Type: 
  Country: None (occurrence: None)
  Receive Date: 20060104
  Receipt Date: 20060104
  Transmission Date: 20060701
  Serious: Yes (Hospitalization)
  Sender: FDA-Public Use
  Company Number: None

PATIENT
  Age: 3 Year
  Sex: Male
  Weight: 15 kg

DRUGS (3)
  1. TRILEPTAL [Suspect]
     Dates: start: 20051206, end: 20051215
  2. AMOXICILLIN [Concomitant]
  3. AZITHROMYCIN [Concomitant]

REACTIONS (4)
  - AGGRESSION [None]
  - NEUTROPENIA [None]
  - PYREXIA [None]
  - RASH [None]
